FAERS Safety Report 9441771 (Version 1)
Quarter: 2013Q3

REPORT INFORMATION
  Report Type: Spontaneous
  Country: US (occurrence: US)
  Receive Date: 20130806
  Receipt Date: 20130806
  Transmission Date: 20140515
  Serious: Yes (Hospitalization, Other)
  Sender: FDA-Public Use
  Company Number: US-AMGEN-USASP2013054148

PATIENT
  Age: 61 Year
  Sex: Male

DRUGS (3)
  1. XGEVA [Suspect]
     Indication: METASTASES TO BONE
     Dosage: UNK
     Route: 065
     Dates: start: 20130709
  2. LEUPRON PED [Concomitant]
  3. ERGOCALCIFEROL [Concomitant]
     Dosage: 50000 UNIT, QWK

REACTIONS (6)
  - Diplopia [Unknown]
  - Vision blurred [Unknown]
  - Fatigue [Unknown]
  - Metastases to eye [Unknown]
  - Chvostek^s sign [Unknown]
  - Hypocalcaemia [Not Recovered/Not Resolved]
